FAERS Safety Report 7633943-6 (Version None)
Quarter: 2011Q3

REPORT INFORMATION
  Report Type: 
  Country: None (occurrence: None)
  Receive Date: 20110725
  Receipt Date: 20110714
  Transmission Date: 20111222
  Serious: Yes (Other)
  Sender: FDA-Public Use
  Company Number: CA-JNJFOC-20110707131

PATIENT
  Sex: Male
  Weight: 65.5 kg

DRUGS (3)
  1. METHOTREXATE [Concomitant]
     Route: 048
  2. REMICADE [Suspect]
     Route: 042
     Dates: start: 20080904, end: 20110708
  3. REMICADE [Suspect]
     Indication: BEHCET'S SYNDROME
     Dosage: DOSE 18 ON THIS DATE
     Route: 042
     Dates: start: 20110714

REACTIONS (2)
  - BEHCET'S SYNDROME [None]
  - VISUAL IMPAIRMENT [None]
